FAERS Safety Report 20518835 (Version 1)
Quarter: 2022Q1

REPORT INFORMATION
  Report Type: Spontaneous
  Country: US (occurrence: None)
  Receive Date: 20220224
  Receipt Date: 20220224
  Transmission Date: 20220423
  Serious: Yes (Hospitalization)
  Sender: FDA-Public Use
  Company Number: None

PATIENT
  Age: 68 Year
  Sex: Male
  Weight: 90 kg

DRUGS (12)
  1. WELIREG [Suspect]
     Active Substance: BELZUTIFAN
     Indication: Renal cancer
     Dosage: FREQUENCY : DAILY;?
     Route: 048
     Dates: start: 20220201, end: 20220221
  2. ATENOLOL [Concomitant]
     Active Substance: ATENOLOL
  3. ATENOLOL [Concomitant]
     Active Substance: ATENOLOL
  4. DRISDOL [Concomitant]
     Active Substance: ERGOCALCIFEROL
  5. LEVOTHYROXINE [Concomitant]
     Active Substance: LEVOTHYROXINE
  6. LISINOPRIL [Concomitant]
     Active Substance: LISINOPRIL
  7. ONDANSETRON [Concomitant]
     Active Substance: ONDANSETRON
  8. OXYCODONE [Concomitant]
     Active Substance: OXYCODONE
  9. POTASSIUM [Concomitant]
     Active Substance: POTASSIUM
  10. PROCARDIA [Concomitant]
     Active Substance: NIFEDIPINE
  11. ROBITUSSIN (GUAIFENESIN) [Concomitant]
     Active Substance: GUAIFENESIN
  12. VITAMIN B12 [Concomitant]
     Active Substance: CYANOCOBALAMIN

REACTIONS (3)
  - Fluid retention [None]
  - Oedema [None]
  - Dyspnoea [None]

NARRATIVE: CASE EVENT DATE: 20220221
